FAERS Safety Report 19263966 (Version 3)
Quarter: 2021Q2

REPORT INFORMATION
  Report Type: Other
  Country: US (occurrence: US)
  Receive Date: 20210517
  Receipt Date: 20210604
  Transmission Date: 20210717
  Serious: Yes (Hospitalization)
  Sender: FDA-Public Use
  Company Number: US-ROCHE-2827756

PATIENT
  Age: 52 Year
  Sex: Female
  Weight: 83.99 kg

DRUGS (18)
  1. TYLENOL [Concomitant]
     Active Substance: ACETAMINOPHEN
  2. SKELAXIN [Concomitant]
     Active Substance: METAXALONE
  3. REGLAN [Concomitant]
     Active Substance: METOCLOPRAMIDE HYDROCHLORIDE
  4. OCREVUS [Suspect]
     Active Substance: OCRELIZUMAB
     Indication: RELAPSING MULTIPLE SCLEROSIS
  5. OCREVUS [Suspect]
     Active Substance: OCRELIZUMAB
     Indication: RELAPSING-REMITTING MULTIPLE SCLEROSIS
     Dosage: TWO HALF DOSES
     Route: 042
     Dates: start: 20210222, end: 20210310
  6. NORCO [Concomitant]
     Active Substance: ACETAMINOPHEN\HYDROCODONE BITARTRATE
     Indication: PAIN
     Dosage: UP TO 5 TIMES PER DAY ;ONGOING: YES
     Route: 048
     Dates: start: 2004
  7. PEPCID [Concomitant]
     Active Substance: FAMOTIDINE
     Indication: GASTROOESOPHAGEAL REFLUX DISEASE
     Dosage: UP TO 2 TIMES PER DAY ;ONGOING: YES
     Route: 048
     Dates: start: 2019
  8. GABAPENTIN. [Concomitant]
     Active Substance: GABAPENTIN
     Indication: PAIN
     Dosage: UP TO 3 TIMES PER DAY ;ONGOING: YES
     Route: 048
     Dates: start: 2020
  9. FLONASE [Concomitant]
     Active Substance: FLUTICASONE PROPIONATE
  10. PHENERGAN [Concomitant]
     Active Substance: PROMETHAZINE HYDROCHLORIDE
     Indication: NAUSEA
     Route: 048
     Dates: start: 2009
  11. KLONOPIN [Concomitant]
     Active Substance: CLONAZEPAM
     Route: 048
  12. LUNESTA [Concomitant]
     Active Substance: ESZOPICLONE
  13. NEURONTIN [Concomitant]
     Active Substance: GABAPENTIN
  14. LASIX [Concomitant]
     Active Substance: FUROSEMIDE
     Indication: SWELLING
     Dosage: 1 TO 3 TABS PER DAY ;ONGOING: YES
     Route: 048
  15. BENTYL [Concomitant]
     Active Substance: DICYCLOMINE HYDROCHLORIDE
     Route: 048
  16. BENADRYL [Concomitant]
     Active Substance: DIPHENHYDRAMINE HYDROCHLORIDE
     Dosage: PRIOR TO OCREVUS INFUSION OR PRIOR TO STEROIDS ;ONGOING: YES
     Route: 065
  17. XYZAL [Concomitant]
     Active Substance: LEVOCETIRIZINE DIHYDROCHLORIDE
     Indication: SEASONAL ALLERGY
     Route: 048
     Dates: start: 2018
  18. MOTRIN [Concomitant]
     Active Substance: IBUPROFEN

REACTIONS (20)
  - Odynophagia [Recovered/Resolved]
  - Pain [Not Recovered/Not Resolved]
  - Red cell distribution width increased [Unknown]
  - Haemoglobin decreased [Unknown]
  - Decreased activity [Unknown]
  - Fatigue [Not Recovered/Not Resolved]
  - Blood bilirubin decreased [Unknown]
  - Blood potassium decreased [Unknown]
  - Pneumonia [Recovering/Resolving]
  - Candida infection [Recovered/Resolved]
  - Illness [Recovering/Resolving]
  - Red blood cell count decreased [Unknown]
  - Hypersomnia [Unknown]
  - Asthenia [Unknown]
  - Platelet count increased [Unknown]
  - Pleurisy [Not Recovered/Not Resolved]
  - Fall [Unknown]
  - Weight increased [Not Recovered/Not Resolved]
  - Blood albumin decreased [Unknown]
  - Pharyngeal swelling [Recovered/Resolved]

NARRATIVE: CASE EVENT DATE: 20210222
